FAERS Safety Report 24647887 (Version 1)
Quarter: 2024Q4

REPORT INFORMATION
  Report Type: Spontaneous
  Country: ES (occurrence: ES)
  Receive Date: 20241121
  Receipt Date: 20241121
  Transmission Date: 20250115
  Serious: Yes (Other)
  Sender: DAIICHI
  Company Number: ES-DSJP-DS-2024-107558-ES

PATIENT
  Age: 74 Year
  Sex: Male

DRUGS (2)
  1. EDOXABAN TOSYLATE [Suspect]
     Active Substance: EDOXABAN TOSYLATE
     Indication: Anticoagulant therapy
     Dosage: UNK
     Route: 065
  2. EDOXABAN TOSYLATE [Suspect]
     Active Substance: EDOXABAN TOSYLATE
     Dosage: UNK (RESTARTED TREATMENT)
     Route: 065

REACTIONS (3)
  - Nephrolithiasis [Unknown]
  - Haematuria [Not Recovered/Not Resolved]
  - Intentional product misuse [Unknown]
